FAERS Safety Report 8565585-2 (Version None)
Quarter: 2012Q3

REPORT INFORMATION
  Report Type: 
  Country: None (occurrence: None)
  Receive Date: 20120803
  Receipt Date: 20120730
  Transmission Date: 20120928
  Serious: Yes (Other)
  Sender: FDA-Public Use
  Company Number: US-PFIZER INC-2012103395

PATIENT
  Sex: Female
  Weight: 55.782 kg

DRUGS (3)
  1. LIPITOR [Suspect]
     Dosage: UNK
  2. PLAVIX [Concomitant]
     Dosage: UNK
  3. PROTONIX [Suspect]
     Dosage: UNK
     Dates: start: 20111201

REACTIONS (4)
  - COLECTOMY [None]
  - HYPOAESTHESIA [None]
  - ABDOMINAL DISCOMFORT [None]
  - COMA [None]
